FAERS Safety Report 9470619 (Version 2)
Quarter: 2013Q4

REPORT INFORMATION
  Report Type: Spontaneous
  Country: US (occurrence: US)
  Receive Date: 20130822
  Receipt Date: 20131008
  Transmission Date: 20140711
  Serious: Yes (Death, Hospitalization)
  Sender: FDA-Public Use
  Company Number: US-PFIZER INC-2013242991

PATIENT
  Age: 94 Year
  Sex: Male
  Weight: 57.14 kg

DRUGS (1)
  1. DILANTIN [Suspect]
     Indication: CONVULSION
     Dosage: UNK, 1X/DAY
     Route: 048
     Dates: start: 1995

REACTIONS (1)
  - Death [Fatal]
